FAERS Safety Report 19287900 (Version 2)
Quarter: 2022Q1

REPORT INFORMATION
  Report Type: Spontaneous
  Country: CA (occurrence: None)
  Receive Date: 20210521
  Receipt Date: 20220128
  Transmission Date: 20220423
  Serious: Yes (Life-Threatening, Hospitalization, Other)
  Sender: FDA-Public Use
  Company Number: 2021A451205

PATIENT
  Sex: Female

DRUGS (63)
  1. SEROQUEL XR [Suspect]
     Active Substance: QUETIAPINE FUMARATE
     Dosage: UNKNOWN
     Route: 048
  2. SEROQUEL [Suspect]
     Active Substance: QUETIAPINE FUMARATE
     Route: 048
  3. CRESTOR [Suspect]
     Active Substance: ROSUVASTATIN CALCIUM
     Route: 048
  4. PULMICORT TURBUHALER [Suspect]
     Active Substance: BUDESONIDE
     Route: 055
  5. BRICANYL [Suspect]
     Active Substance: TERBUTALINE SULFATE
     Route: 065
  6. RHINOCORT [Suspect]
     Active Substance: BUDESONIDE
     Route: 045
  7. SYMBICORT [Suspect]
     Active Substance: BUDESONIDE\FORMOTEROL FUMARATE DIHYDRATE
     Route: 055
  8. ADVAIR HFA [Suspect]
     Active Substance: FLUTICASONE PROPIONATE\SALMETEROL XINAFOATE
     Route: 065
  9. ADVIL [Concomitant]
     Active Substance: IBUPROFEN
  10. RABEPRAZOLE [Concomitant]
     Active Substance: RABEPRAZOLE
  11. PREGABALIN [Concomitant]
     Active Substance: PREGABALIN
  12. LIPITOR [Concomitant]
     Active Substance: ATORVASTATIN CALCIUM
  13. MEFENAMIC ACID [Concomitant]
     Active Substance: MEFENAMIC ACID
  14. LYRICA [Concomitant]
     Active Substance: PREGABALIN
  15. CELEBREX [Concomitant]
     Active Substance: CELECOXIB
  16. XANAX [Concomitant]
     Active Substance: ALPRAZOLAM
  17. POLYETHYLENE GLYCOL 3350\POTASSIUM CHLORIDE\SODIUM BICARBONATE\SODIUM [Concomitant]
     Active Substance: POLYETHYLENE GLYCOL 3350\POTASSIUM CHLORIDE\SODIUM BICARBONATE\SODIUM CHLORIDE\SODIUM SULFATE
  18. METAMUCIL [Concomitant]
     Active Substance: PLANTAGO SEED
  19. GAVISCON [Concomitant]
     Active Substance: ALUMINUM HYDROXIDE\MAGNESIUM CARBONATE
  20. PERCOCET [Concomitant]
     Active Substance: ACETAMINOPHEN\OXYCODONE HYDROCHLORIDE
  21. TYLENOL [Concomitant]
     Active Substance: ACETAMINOPHEN
  22. DICLOFENAC SODIUM [Concomitant]
     Active Substance: DICLOFENAC SODIUM
  23. CLONAZEPAM [Concomitant]
     Active Substance: CLONAZEPAM
  24. ZYPREXA [Concomitant]
     Active Substance: OLANZAPINE
  25. LIPITOR [Concomitant]
     Active Substance: ATORVASTATIN CALCIUM
  26. OXAZEPAM [Concomitant]
     Active Substance: OXAZEPAM
  27. VALPROIC ACID [Concomitant]
     Active Substance: VALPROIC ACID
  28. EPIVAL [Concomitant]
     Active Substance: DIVALPROEX SODIUM
  29. DEPAKOTE [Concomitant]
     Active Substance: DIVALPROEX SODIUM
  30. DIVALPROEX SODIUM [Concomitant]
     Active Substance: DIVALPROEX SODIUM
  31. RISPERIDONE [Concomitant]
     Active Substance: RISPERIDONE
  32. WELLBUTRIN XL [Concomitant]
     Active Substance: BUPROPION HYDROCHLORIDE
  33. WELLBUTRIN [Concomitant]
     Active Substance: BUPROPION HYDROCHLORIDE
  34. LATUDA [Concomitant]
     Active Substance: LURASIDONE HYDROCHLORIDE
  35. PREDNISONE [Concomitant]
     Active Substance: PREDNISONE
  36. AMITRIPTYLINE [Concomitant]
     Active Substance: AMITRIPTYLINE
  37. TEVA-DICLOFENAC [Concomitant]
  38. CLOZARIL [Concomitant]
     Active Substance: CLOZAPINE
  39. ZELDOX [Concomitant]
     Active Substance: ZIPRASIDONE
  40. MORPHINE [Concomitant]
     Active Substance: MORPHINE
  41. PREVNAR13 [Concomitant]
  42. LIDOCAINE [Concomitant]
     Active Substance: LIDOCAINE
  43. XANAX [Concomitant]
     Active Substance: ALPRAZOLAM
  44. DEPO-PROVERA [Concomitant]
     Active Substance: MEDROXYPROGESTERONE ACETATE
  45. VERAPAMIL [Concomitant]
     Active Substance: VERAPAMIL HYDROCHLORIDE
  46. FLAGYL [Concomitant]
     Active Substance: METRONIDAZOLE\METRONIDAZOLE HYDROCHLORIDE
  47. RELAPAX [Concomitant]
  48. ZOLOFT [Concomitant]
     Active Substance: SERTRALINE HYDROCHLORIDE
  49. LORAZEPAM [Concomitant]
     Active Substance: LORAZEPAM
  50. DIAZEPAM [Concomitant]
     Active Substance: DIAZEPAM
  51. EFFEXOR [Concomitant]
     Active Substance: VENLAFAXINE HYDROCHLORIDE
  52. ATIVAN [Concomitant]
     Active Substance: LORAZEPAM
  53. ASPIRIN [Concomitant]
     Active Substance: ASPIRIN
  54. ALEVE [Concomitant]
     Active Substance: NAPROXEN SODIUM
  55. MIRALAX [Concomitant]
     Active Substance: POLYETHYLENE GLYCOL 3350
  56. CLARITIN [Concomitant]
     Active Substance: LORATADINE
  57. METFORMIN [Concomitant]
     Active Substance: METFORMIN HYDROCHLORIDE
  58. OMNARIS [Concomitant]
     Active Substance: CICLESONIDE
  59. LEVOFLOXACIN [Concomitant]
     Active Substance: LEVOFLOXACIN
  60. FLUOXETINE [Concomitant]
     Active Substance: FLUOXETINE HYDROCHLORIDE
  61. GABAPENTIN [Concomitant]
     Active Substance: GABAPENTIN
  62. ALLEGRA [Concomitant]
     Active Substance: FEXOFENADINE HYDROCHLORIDE
  63. DOMPERIDONE [Concomitant]
     Active Substance: DOMPERIDONE

REACTIONS (11)
  - Abdominal discomfort [Unknown]
  - Agitation [Unknown]
  - Dizziness [Unknown]
  - Dry mouth [Unknown]
  - Head injury [Unknown]
  - Headache [Unknown]
  - Micturition urgency [Unknown]
  - Nausea [Unknown]
  - Oropharyngeal pain [Unknown]
  - Somnolence [Unknown]
  - Vomiting [Unknown]
